FAERS Safety Report 23259070 (Version 1)
Quarter: 2023Q4

REPORT INFORMATION
  Report Type: Report from Study
  Country: MX (occurrence: MX)
  Receive Date: 20231204
  Receipt Date: 20231204
  Transmission Date: 20240109
  Serious: Yes (Other)
  Sender: FDA-Public Use
  Company Number: MX-UCBSA-2023056443

PATIENT

DRUGS (2)
  1. LEVETIRACETAM [Interacting]
     Active Substance: LEVETIRACETAM
     Indication: Epilepsy
     Dosage: UNK
  2. VALPROIC ACID [Interacting]
     Active Substance: VALPROIC ACID
     Indication: Epilepsy
     Dosage: UNK

REACTIONS (15)
  - Seizure [Unknown]
  - Neutropenia [Unknown]
  - Thrombocytopenia [Unknown]
  - Liver injury [Unknown]
  - Somnolence [Unknown]
  - Irritability [Unknown]
  - Alopecia [Unknown]
  - Erythema [Unknown]
  - Constipation [Unknown]
  - Rash [Unknown]
  - Oedema [Unknown]
  - Adverse drug reaction [Unknown]
  - Drug level decreased [Unknown]
  - Anticonvulsant drug level above therapeutic [Unknown]
  - Drug interaction [Unknown]
